FAERS Safety Report 7424719-3 (Version None)
Quarter: 2011Q2

REPORT INFORMATION
  Report Type: 
  Country: None (occurrence: None)
  Receive Date: 20110419
  Receipt Date: 20110404
  Transmission Date: 20111010
  Serious: Yes (Other)
  Sender: FDA-Public Use
  Company Number: PHHY2011US18831

PATIENT
  Sex: Female

DRUGS (4)
  1. GILENYA [Suspect]
     Dosage: 0.5 MG, QOD
     Route: 048
     Dates: start: 20110322
  2. ADDERALL 10 [Concomitant]
     Indication: FATIGUE
     Dosage: 20 MG, IN THE MORNING AND 10 MG AT NIGHT
  3. NEURONTIN [Concomitant]
     Indication: PAIN
     Dosage: 100-300 MG, QHS
     Route: 048
  4. GILENYA [Suspect]
     Indication: RELAPSING-REMITTING MULTIPLE SCLEROSIS
     Dosage: 0.5 MG, DAILY
     Route: 048
     Dates: start: 20110108

REACTIONS (8)
  - INCORRECT DOSE ADMINISTERED [None]
  - SENSORY LOSS [None]
  - MUSCULAR WEAKNESS [None]
  - COUGH [None]
  - UPPER RESPIRATORY TRACT INFECTION [None]
  - NASOPHARYNGITIS [None]
  - BRONCHITIS [None]
  - ATAXIA [None]
